FAERS Safety Report 7731567-3 (Version None)
Quarter: 2011Q3

REPORT INFORMATION
  Report Type: 
  Country: None (occurrence: None)
  Receive Date: 20110906
  Receipt Date: 20110824
  Transmission Date: 20111222
  Serious: Yes (Hospitalization)
  Sender: FDA-Public Use
  Company Number: TR-BAYER-2011-077181

PATIENT
  Age: 50 Year
  Sex: Male

DRUGS (2)
  1. CALCIUM CARBONATE [Suspect]
     Indication: DYSPEPSIA
     Dosage: 3-4 TABLETS/DAY
  2. CALCIUM CARBONATE [Suspect]
     Dosage: 15-20 TABLETS/DAY

REACTIONS (4)
  - MILK-ALKALI SYNDROME [None]
  - HYPERCALCAEMIA [None]
  - METABOLIC ALKALOSIS [None]
  - RENAL FAILURE ACUTE [None]
